FAERS Safety Report 6877874-8 (Version None)
Quarter: 2010Q3

REPORT INFORMATION
  Report Type: 
  Country: None (occurrence: None)
  Receive Date: 20100727
  Receipt Date: 20100714
  Transmission Date: 20110219
  Serious: Yes (Other)
  Sender: FDA-Public Use
  Company Number: PHHY2010JP47529

PATIENT
  Age: 62 Year
  Sex: Female

DRUGS (4)
  1. LAMISIL [Suspect]
     Dosage: 125 MG, UNK
     Route: 048
     Dates: start: 20100419
  2. LIPITOR [Suspect]
     Indication: DYSLIPIDAEMIA
     Dosage: UNK
     Route: 048
  3. MICARDIS [Suspect]
     Indication: HYPERTENSION
     Route: 048
  4. NORVASC [Suspect]
     Indication: HYPERTENSION

REACTIONS (2)
  - CYSTITIS [None]
  - MYALGIA [None]
